FAERS Safety Report 9921819 (Version 1)
Quarter: 2014Q1

REPORT INFORMATION
  Report Type: Spontaneous
  Country: US (occurrence: US)
  Receive Date: 20140225
  Receipt Date: 20140225
  Transmission Date: 20141002
  Serious: No
  Sender: FDA-Public Use
  Company Number: US-009507513-1402USA010526

PATIENT
  Sex: Female

DRUGS (7)
  1. JANUVIA [Suspect]
     Indication: TYPE 2 DIABETES MELLITUS
     Dosage: UNK
     Route: 048
     Dates: start: 201401
  2. JANUVIA [Suspect]
     Dosage: UNK
     Route: 048
     Dates: start: 201301, end: 2013
  3. CYMBALTA [Suspect]
  4. ZETIA [Suspect]
     Dosage: UNK
     Route: 048
     Dates: start: 201401
  5. METFORMIN [Concomitant]
  6. RESTASIS [Concomitant]
  7. DIAZEPAM [Concomitant]
     Route: 048

REACTIONS (1)
  - Suicidal ideation [Unknown]
